FAERS Safety Report 13160922 (Version 1)
Quarter: 2017Q1

REPORT INFORMATION
  Report Type: Spontaneous
  Country: CA (occurrence: CA)
  Receive Date: 20170130
  Receipt Date: 20170130
  Transmission Date: 20170428
  Serious: Yes (Hospitalization)
  Sender: FDA-Public Use
  Company Number: CA-AXELLIA-001034

PATIENT
  Age: 83 Year
  Sex: Female

DRUGS (8)
  1. COLISTIN [Suspect]
     Active Substance: COLISTIN
     Indication: BRONCHIECTASIS
     Route: 055
  2. ACETYLSALICYLIC ACID [Concomitant]
     Active Substance: ASPIRIN
  3. CODEINE/PARACETAMOL [Concomitant]
  4. IRON [Concomitant]
     Active Substance: IRON
  5. OXAZEPAM. [Concomitant]
     Active Substance: OXAZEPAM
  6. DILTIAZEM. [Concomitant]
     Active Substance: DILTIAZEM
  7. PRAVASTATIN. [Concomitant]
     Active Substance: PRAVASTATIN
  8. ISOSORBIDE. [Concomitant]
     Active Substance: ISOSORBIDE

REACTIONS (1)
  - Pulmonary eosinophilia [Recovered/Resolved]
